FAERS Safety Report 8110478-8 (Version None)
Quarter: 2012Q1

REPORT INFORMATION
  Report Type: 
  Country: None (occurrence: None)
  Receive Date: 20120202
  Receipt Date: 20120126
  Transmission Date: 20120608
  Serious: Yes (Other)
  Sender: FDA-Public Use
  Company Number: US-ASTRAZENECA-2012SE05704

PATIENT
  Age: 58 Year
  Sex: Female
  Weight: 68 kg

DRUGS (3)
  1. SEROQUEL [Suspect]
     Indication: DEPRESSION
     Route: 048
     Dates: start: 19940101
  2. SEROQUEL [Suspect]
     Route: 048
  3. PAXIL [Concomitant]
     Indication: DEPRESSION

REACTIONS (7)
  - HYPERSOMNIA [None]
  - ASTHENIA [None]
  - SOMNOLENCE [None]
  - LUNG NEOPLASM MALIGNANT [None]
  - FALL [None]
  - THERAPEUTIC RESPONSE UNEXPECTED [None]
  - OFF LABEL USE [None]
